FAERS Safety Report 25763865 (Version 1)
Quarter: 2025Q3

REPORT INFORMATION
  Report Type: Spontaneous
  Country: US (occurrence: US)
  Receive Date: 20250905
  Receipt Date: 20250905
  Transmission Date: 20251021
  Serious: No
  Sender: DOMPE FARMACEUTICI
  Company Number: US-FARMAPROD-202412-4099

PATIENT
  Age: 75 Year
  Sex: Female

DRUGS (11)
  1. OXERVATE [Suspect]
     Active Substance: CENEGERMIN-BKBJ
     Indication: Neurotrophic keratopathy
     Route: 047
     Dates: start: 20241127
  2. RETAINE PM [Concomitant]
     Active Substance: MINERAL OIL\PETROLATUM
  3. OCUSOFT LID SCRUB [Concomitant]
  4. REFRESH OPTIVE MEGA-3 [Concomitant]
     Active Substance: CARBOXYMETHYLCELLULOSE SODIUM\GLYCERIN\POLYSORBATE 80
  5. PATADAY ONCE DAILY RELIEF [Concomitant]
     Active Substance: OLOPATADINE HYDROCHLORIDE
  6. CALCIUM [Concomitant]
     Active Substance: CALCIUM
  7. UNSPECIFIED INGREDIENT [Concomitant]
     Active Substance: UNSPECIFIED INGREDIENT
  8. VITAMIN C [Concomitant]
     Active Substance: ASCORBIC ACID
  9. VITAMIN D3 [Concomitant]
     Active Substance: CHOLECALCIFEROL
  10. CYCLOSPORINE [Concomitant]
     Active Substance: CYCLOSPORINE
  11. LORAZEPAM [Concomitant]
     Active Substance: LORAZEPAM

REACTIONS (4)
  - Product dose omission issue [Unknown]
  - Eye pain [Not Recovered/Not Resolved]
  - Vision blurred [Recovering/Resolving]
  - Eye inflammation [Unknown]

NARRATIVE: CASE EVENT DATE: 20241127
